FAERS Safety Report 6423031-9 (Version None)
Quarter: 2009Q4

REPORT INFORMATION
  Report Type: 
  Country: None (occurrence: None)
  Receive Date: 20091102
  Receipt Date: 20091020
  Transmission Date: 20100525
  Serious: Yes (Hospitalization)
  Sender: FDA-Public Use
  Company Number: PHEH2009US14134

PATIENT
  Sex: Male

DRUGS (2)
  1. EXJADE [Suspect]
     Indication: IRON METABOLISM DISORDER
     Dosage: 750 MG, DAILY
     Route: 048
     Dates: start: 20090519
  2. EXJADE [Suspect]
     Indication: PLASMA PROTEIN METABOLISM DISORDER

REACTIONS (1)
  - HIP FRACTURE [None]
